FAERS Safety Report 9136130 (Version 1)
Quarter: 2013Q1

REPORT INFORMATION
  Report Type: Report from Study
  Country: US (occurrence: US)
  Receive Date: 20130304
  Receipt Date: 20130304
  Transmission Date: 20140127
  Serious: No
  Sender: FDA-Public Use
  Company Number: US-ABBOTT-12P-163-0917899-00

PATIENT
  Sex: Male
  Weight: 86.26 kg

DRUGS (6)
  1. ANDROGEL 1% [Suspect]
     Indication: BLOOD TESTOSTERONE DECREASED
     Dosage: ^1.5 MONTHS^
     Route: 061
     Dates: start: 201202
  2. ANDROGEL 1% [Suspect]
     Dosage: ABOUT 4-5 PUMPS DAILY
     Route: 061
  3. WARFARIN [Concomitant]
     Indication: ANTICOAGULANT THERAPY
  4. VYTOREN [Concomitant]
     Indication: BLOOD CHOLESTEROL INCREASED
  5. METOPROLOL TARTRATE [Concomitant]
     Indication: HYPERTENSION
  6. VENLAFAXINE [Concomitant]
     Indication: DEPRESSION
     Route: 048

REACTIONS (5)
  - Blood testosterone decreased [Not Recovered/Not Resolved]
  - Weight increased [Not Recovered/Not Resolved]
  - Blood pressure diastolic increased [Not Recovered/Not Resolved]
  - Application site pain [Not Recovered/Not Resolved]
  - Drug administered at inappropriate site [Not Recovered/Not Resolved]
